FAERS Safety Report 25637259 (Version 1)
Quarter: 2025Q3

REPORT INFORMATION
  Report Type: Spontaneous
  Country: JP (occurrence: JP)
  Receive Date: 20250804
  Receipt Date: 20250804
  Transmission Date: 20251021
  Serious: Yes (Death, Hospitalization)
  Sender: ROCHE
  Company Number: JP-CHUGAI-2025024574

PATIENT
  Age: 74 Year
  Sex: Female
  Weight: 45.6 kg

DRUGS (3)
  1. TECENTRIQ [Suspect]
     Active Substance: ATEZOLIZUMAB
     Indication: Small cell lung cancer extensive stage
     Route: 042
     Dates: start: 20250424, end: 20250616
  2. CARBOPLATIN [Concomitant]
     Active Substance: CARBOPLATIN
     Indication: Small cell lung cancer extensive stage
     Route: 042
     Dates: start: 20250424, end: 20250616
  3. ETOPOSIDE [Concomitant]
     Active Substance: ETOPOSIDE
     Indication: Small cell lung cancer extensive stage
     Route: 042
     Dates: start: 20250424, end: 20250616

REACTIONS (5)
  - Type 1 diabetes mellitus [Fatal]
  - Hyperglycaemic hyperosmolar nonketotic syndrome [Fatal]
  - Cardiac arrest [Fatal]
  - Respiratory arrest [Fatal]
  - Ileus paralytic [Unknown]

NARRATIVE: CASE EVENT DATE: 20250601
